FAERS Safety Report 6046453-7 (Version None)
Quarter: 2009Q1

REPORT INFORMATION
  Report Type: 
  Country: None (occurrence: None)
  Receive Date: 20090121
  Receipt Date: 20090121
  Transmission Date: 20090719
  Serious: Yes (Other)
  Sender: FDA-Public Use
  Company Number: None

PATIENT
  Age: 37 Year
  Sex: Female
  Weight: 111.1313 kg

DRUGS (1)
  1. OCELLA BARR LABORATORIES [Suspect]
     Indication: CONTRACEPTION
     Dosage: DAILY PO
     Route: 048
     Dates: start: 20090103, end: 20090114

REACTIONS (3)
  - PRODUCT QUALITY ISSUE [None]
  - RASH GENERALISED [None]
  - URTICARIA [None]
